FAERS Safety Report 8360067-5 (Version None)
Quarter: 2012Q2

REPORT INFORMATION
  Report Type: 
  Country: None (occurrence: None)
  Receive Date: 20120515
  Receipt Date: 20120510
  Transmission Date: 20120825
  Serious: Yes (Hospitalization)
  Sender: FDA-Public Use
  Company Number: PHEH2012US010051

PATIENT
  Sex: Female

DRUGS (11)
  1. GABAPENTIN [Concomitant]
  2. ASPIRIN [Concomitant]
  3. VERAPAMIL [Concomitant]
  4. PEPCID [Concomitant]
  5. RYTHMOL [Concomitant]
  6. LASIX [Concomitant]
  7. ZOCOR [Concomitant]
  8. CARDIZEM [Concomitant]
  9. ZYLOPRIM [Concomitant]
  10. TASIGNA [Suspect]
     Indication: CHRONIC MYELOID LEUKAEMIA
     Dosage: 400 MG, BID
     Route: 048
     Dates: start: 20120414
  11. FERROUS FUMARATE [Concomitant]

REACTIONS (2)
  - DYSPNOEA [None]
  - HYPERTENSION [None]
